FAERS Safety Report 24718287 (Version 2)
Quarter: 2025Q1

REPORT INFORMATION
  Report Type: Spontaneous
  Country: BR (occurrence: BR)
  Receive Date: 20241210
  Receipt Date: 20250113
  Transmission Date: 20250409
  Serious: Yes (Hospitalization, Other)
  Sender: AMGEN
  Company Number: BR-AMGEN-BRASP2024238444

PATIENT
  Age: 42 Year
  Sex: Female
  Weight: 77 kg

DRUGS (3)
  1. PEGFILGRASTIM [Suspect]
     Active Substance: PEGFILGRASTIM
     Indication: Neutropenia
     Route: 058
     Dates: start: 20241114, end: 20241114
  2. DOXORUBICIN [Concomitant]
     Active Substance: DOXORUBICIN
  3. CYCLOPHOSPHAMIDE [Concomitant]
     Active Substance: CYCLOPHOSPHAMIDE

REACTIONS (3)
  - Neutropenia [Recovered/Resolved]
  - White blood cell count decreased [Recovered/Resolved]
  - Therapy non-responder [Recovered/Resolved]

NARRATIVE: CASE EVENT DATE: 20241121
